FAERS Safety Report 5694046-3 (Version None)
Quarter: 2008Q2

REPORT INFORMATION
  Report Type: 
  Country: None (occurrence: None)
  Receive Date: 20080403
  Receipt Date: 20080326
  Transmission Date: 20081010
  Serious: Yes (Hospitalization)
  Sender: FDA-Public Use
  Company Number: AU-GENENTECH-258058

PATIENT
  Sex: Male

DRUGS (13)
  1. APOMAB (PRO95780) [Suspect]
     Indication: NON-SMALL CELL LUNG CANCER
     Dosage: 730 MG, UNK
     Route: 042
     Dates: start: 20080131
  2. BEVACIZUMAB [Suspect]
     Indication: NON-SMALL CELL LUNG CANCER
     Dosage: 1095 MG, UNK
     Route: 042
     Dates: start: 20080131
  3. PACLITAXEL [Suspect]
     Indication: NON-SMALL CELL LUNG CANCER
     Dosage: 365 MG, UNK
     Route: 042
     Dates: start: 20080131
  4. CARBOPLATIN [Suspect]
     Indication: NON-SMALL CELL LUNG CANCER
     Dosage: 785 MG, UNK
     Route: 042
     Dates: start: 20080131
  5. ASPIRIN [Concomitant]
     Indication: CARDIAC DISORDER
     Dosage: 100 MG, QD
     Route: 048
     Dates: start: 20070901
  6. CLOPIDOGREL [Concomitant]
     Indication: CARDIAC DISORDER
     Dosage: 75 MG, QD
     Route: 048
     Dates: start: 20070701
  7. DIAMICRON [Concomitant]
     Indication: DIABETES MELLITUS
     Dosage: 30 MG, QD
     Route: 048
     Dates: start: 20040101
  8. METOPROLOL TARTRATE [Concomitant]
     Indication: CARDIAC DISORDER
     Dosage: 50 MG, BID
     Route: 048
     Dates: start: 20070101
  9. ENALAPRIL MALEATE [Concomitant]
     Indication: HYPERTENSION
     Dosage: 20 MG, QD
     Route: 048
     Dates: start: 19950101
  10. LIPITOR [Concomitant]
     Indication: HYPERCHOLESTEROLAEMIA
     Dosage: 20 MG, QD
     Route: 048
     Dates: start: 19990101
  11. FELODIPINE [Concomitant]
     Indication: HYPERTENSION
     Dosage: 10 MG, QD
     Route: 048
     Dates: start: 19950101
  12. RANITIDINE [Concomitant]
     Indication: UNEVALUABLE EVENT
     Dosage: 150 MG, BID
     Route: 048
     Dates: start: 20080312
  13. METFORMIN HCL [Concomitant]
     Indication: DIABETES MELLITUS
     Dosage: 500 MG, QD
     Route: 048
     Dates: start: 20040101

REACTIONS (1)
  - ANGINA PECTORIS [None]
